FAERS Safety Report 19392128 (Version 1)
Quarter: 2021Q2

REPORT INFORMATION
  Report Type: Spontaneous
  Country: CN (occurrence: CN)
  Receive Date: 20210608
  Receipt Date: 20210608
  Transmission Date: 20210717
  Serious: Yes (Hospitalization)
  Sender: FDA-Public Use
  Company Number: CN-PFIZER INC-2021607754

PATIENT
  Age: 82 Year
  Sex: Female
  Weight: 45 kg

DRUGS (3)
  1. LEI GONG TENG DUO GAN [Suspect]
     Active Substance: HERBALS
     Indication: RHEUMATOID ARTHRITIS
     Dosage: 20 MG, 3X/DAY
     Route: 048
     Dates: start: 20210401, end: 20210506
  2. MEDROL [Suspect]
     Active Substance: METHYLPREDNISOLONE
     Indication: RHEUMATOID ARTHRITIS
     Dosage: 4 MG, 1X/DAY
     Route: 048
     Dates: start: 20210401, end: 20210506
  3. DIFLUNISAL. [Suspect]
     Active Substance: DIFLUNISAL
     Indication: RHEUMATOID ARTHRITIS
     Dosage: 0.25 G, 2X/DAY
     Route: 048
     Dates: start: 20210401, end: 20210506

REACTIONS (13)
  - Nausea [Recovered/Resolved]
  - Dry mouth [Recovered/Resolved]
  - Alopecia [Recovered/Resolved]
  - Decreased appetite [Recovered/Resolved]
  - Pruritus [Recovered/Resolved]
  - Pain [Recovered/Resolved]
  - Neuritis [Recovered/Resolved]
  - Oral herpes [Recovered/Resolved]
  - Dizziness [Recovered/Resolved]
  - Asthenia [Recovered/Resolved]
  - Melanosis [Recovered/Resolved]
  - Insomnia [Recovered/Resolved]
  - Dermatitis [Recovered/Resolved]

NARRATIVE: CASE EVENT DATE: 20210506
